FAERS Safety Report 6260330-8 (Version None)
Quarter: 2009Q3

REPORT INFORMATION
  Report Type: 
  Country: None (occurrence: None)
  Receive Date: 20090708
  Receipt Date: 20070611
  Transmission Date: 20100115
  Serious: Yes (Life-Threatening, Hospitalization)
  Sender: FDA-Public Use
  Company Number: FR-PFIZER INC-2009236310

PATIENT

DRUGS (9)
  1. HYDROXYZINE HCL [Suspect]
     Dosage: UNK
     Route: 064
     Dates: start: 20070201
  2. VENLAFAXINE [Suspect]
     Route: 064
  3. LERCANIDIPINE HYDROCHLORIDE [Suspect]
     Dosage: UNK
     Route: 064
     Dates: end: 20070216
  4. MEPRONIZINE [Suspect]
     Dosage: UNK
     Route: 064
     Dates: start: 20050301
  5. METHYLDOPA [Suspect]
     Dosage: UNK
     Route: 064
     Dates: start: 20070201
  6. ROSIGLITAZONE MALEATE [Suspect]
     Dosage: UNK
     Route: 064
     Dates: end: 20070216
  7. INSULIN [Concomitant]
     Route: 064
  8. LABETALOL HYDROCHLORIDE [Concomitant]
     Route: 064
  9. NICARDIPINE HYDROCHLORIDE [Concomitant]
     Route: 064

REACTIONS (10)
  - BRONCHOPULMONARY DYSPLASIA [None]
  - DRUG EXPOSURE DURING PREGNANCY [None]
  - FOETAL ARRHYTHMIA [None]
  - FOETAL GROWTH RETARDATION [None]
  - HYPOTONIA NEONATAL [None]
  - JAUNDICE NEONATAL [None]
  - NEONATAL RESPIRATORY DISTRESS SYNDROME [None]
  - PATENT DUCTUS ARTERIOSUS [None]
  - PREMATURE BABY [None]
  - PULMONARY ARTERIAL HYPERTENSION [None]
